FAERS Safety Report 18336126 (Version 3)
Quarter: 2022Q4

REPORT INFORMATION
  Report Type: Spontaneous
  Country: DE (occurrence: DE)
  Receive Date: 20201001
  Receipt Date: 20221221
  Transmission Date: 20230112
  Serious: Yes (Hospitalization, Other)
  Sender: FDA-Public Use
  Company Number: DE-ADRED-05424-01

PATIENT
  Age: 37 Year
  Sex: Female
  Weight: 90 kg

DRUGS (16)
  1. CLONIDINE [Suspect]
     Active Substance: CLONIDINE
     Indication: Product used for unknown indication
     Dosage: 0.075 MILLIGRAM (0.075 MG, 2-0-2-0, TABLET
     Route: 048
  2. TORSEMIDE [Suspect]
     Active Substance: TORSEMIDE
     Indication: Product used for unknown indication
     Dosage: 10 MILLIGRAM (10 MG, 2-1-0-0, TABLET
     Route: 048
  3. METAMIZOL [Concomitant]
     Active Substance: METAMIZOLE SODIUM
     Dosage: 500 MILLIGRAM (500 MG, 4X, TABLET)
     Route: 048
  4. SODIUM CHLORIDE [Concomitant]
     Active Substance: SODIUM CHLORIDE
     Dosage: 1 GRAM (1 G, 2-2-2-0, TABLET)
     Route: 048
  5. ZOPICLONE [Concomitant]
     Active Substance: ZOPICLONE
     Dosage: 7.5 MILLIGRAM, QD (7.5 MG, 0-0-0-1, TABLET)
     Route: 048
  6. INSULIN DETEMIR [Concomitant]
     Active Substance: INSULIN DETEMIR
     Dosage: 24 INTERNATIONAL UNIT, BID (1-0-0-1, AMPOULES)
     Route: 058
  7. INSULIN HUMAN [Concomitant]
     Active Substance: INSULIN HUMAN
     Dosage: 14 INTERNATIONAL UNIT, TID (1-1-1-0, AMPOULES)
     Route: 058
  8. VENLAFAXINE HYDROCHLORIDE [Concomitant]
     Active Substance: VENLAFAXINE HYDROCHLORIDE
     Dosage: 37.5 MG (2-0-0-0, PROLONGED-RELEASE CAPSULE)
     Route: 048
  9. VENLAFAXINE HYDROCHLORIDE [Concomitant]
     Active Substance: VENLAFAXINE HYDROCHLORIDE
     Dosage: 150 MILLIGRAM, QD (1-0-0-0, RETARD-KAPSELN)
     Route: 048
  10. SUMATRIPTAN [Concomitant]
     Active Substance: SUMATRIPTAN
     Dosage: 50 MILLIGRAM (50 MG, 2-0-0-0, TABLET)
     Route: 048
  11. HYDROMORPHONE [Concomitant]
     Active Substance: HYDROMORPHONE
     Dosage: 4 MG, QID (1-1-1-1, PROLONGED-RELEASE CAPSULE)
     Route: 048
  12. MCP AL [Concomitant]
     Dosage: 10 MILLIGRAM (10 MG, 3X, TABLET)
     Route: 048
  13. ROSUVASTATIN [Concomitant]
     Active Substance: ROSUVASTATIN
     Dosage: 40 MILLIGRAM, QD (40 MG, 0-0-1-0, TABLET)
     Route: 048
  14. LOPERAMIDE [Concomitant]
     Active Substance: LOPERAMIDE
     Dosage: 2 MILLIGRAM, TID (2 MG, 1-1-1-0, TABLET)
     Route: 048
  15. AMPHO-MORONAL [Concomitant]
     Active Substance: AMPHOTERICIN B
     Dosage: UNK UNK, QID (NK MG, 1-1-1-1, LOZENGE)
     Route: 048
  16. PIPAMPERONE HYDROCHLORIDE [Concomitant]
     Active Substance: PIPAMPERONE HYDROCHLORIDE
     Dosage: 40 MILLIGRAM, QD (40 MG, 0-0-0-1, TABLET)
     Route: 048

REACTIONS (5)
  - Hypertension [Unknown]
  - Suicidal ideation [Unknown]
  - Pain [Unknown]
  - Hypertensive crisis [Unknown]
  - Musculoskeletal pain [Unknown]
